FAERS Safety Report 9249194 (Version 2)
Quarter: 2013Q4

REPORT INFORMATION
  Report Type: Spontaneous
  Country: US (occurrence: US)
  Receive Date: 20130423
  Receipt Date: 20131003
  Transmission Date: 20140711
  Serious: No
  Sender: FDA-Public Use
  Company Number: US-OTSUKA-US-2013-10702

PATIENT
  Sex: 0

DRUGS (3)
  1. SAMSCA [Suspect]
     Indication: BLOOD SODIUM DECREASED
     Dosage: 15 MG MILLIGRAM(S), QD
     Dates: start: 20130404
  2. COREG [Suspect]
     Indication: HYPERTENSION
     Dosage: UNK
     Dates: start: 20130404
  3. LISINOPRIL [Concomitant]
     Indication: HYPERTENSION

REACTIONS (5)
  - Panic attack [Unknown]
  - Weight decreased [Unknown]
  - Constipation [Unknown]
  - Dizziness [Unknown]
  - Heart rate increased [Unknown]
